FAERS Safety Report 4579375-9 (Version None)
Quarter: 2005Q1

REPORT INFORMATION
  Report Type: 
  Country: None (occurrence: None)
  Receive Date: 20050209
  Receipt Date: 20050125
  Transmission Date: 20050727
  Serious: Yes (Other)
  Sender: FDA-Public Use
  Company Number: 10025

PATIENT
  Age: 3 Year
  Sex: Female

DRUGS (2)
  1. VINCRISTINE [Suspect]
     Indication: RHABDOMYOSARCOMA
     Dosage: 1.5 MG/M2 WEEKLY
  2. ACTINOMYCIN D [Suspect]
     Indication: RHABDOMYOSARCOMA
     Dosage: 1.5 MG/M2 Q3W

REACTIONS (7)
  - ANAEMIA [None]
  - HEPATOMEGALY [None]
  - PYREXIA [None]
  - THROMBOCYTOPENIA [None]
  - TRANSAMINASES INCREASED [None]
  - VENOOCCLUSIVE DISEASE [None]
  - WEIGHT INCREASED [None]
